FAERS Safety Report 10535395 (Version 1)
Quarter: 2014Q4

REPORT INFORMATION
  Report Type: Report from Study
  Country: BR (occurrence: BR)
  Receive Date: 20141022
  Receipt Date: 20141022
  Transmission Date: 20150529
  Serious: Yes (Hospitalization, Other)
  Sender: FDA-Public Use
  Company Number: PHHY2014BR136704

PATIENT
  Age: 85 Year
  Sex: Female
  Weight: 63 kg

DRUGS (8)
  1. EXELON PATCH [Suspect]
     Active Substance: RIVASTIGMINE
     Indication: DEMENTIA
     Dosage: 1 ADHESIVE PER DAY (4.6 MG/24HOURS)
     Route: 062
  2. EXELON PATCH [Suspect]
     Active Substance: RIVASTIGMINE
     Dosage: 1 ADHESIVE PER DAY (4.6 MG/24HOURS)
     Route: 062
     Dates: start: 20141013
  3. PURAN [Concomitant]
     Active Substance: LEVOTHYROXINE SODIUM
     Indication: THYROID DISORDER
     Dosage: 1 TABLET PER DAY
  4. NEOTIAPIM [Suspect]
     Active Substance: QUETIAPINE
     Indication: DEMENTIA
     Dosage: 25 MG, IN MORNING
     Route: 065
  5. PURAN [Concomitant]
     Active Substance: LEVOTHYROXINE SODIUM
     Dosage: 1 TABLET PER DAY
     Dates: start: 20141013
  6. HALDOL [Suspect]
     Active Substance: HALOPERIDOL
     Dosage: UNK
     Dates: start: 20141013
  7. NEOTIAPIM [Suspect]
     Active Substance: QUETIAPINE
     Indication: AGITATION
  8. HALDOL [Suspect]
     Active Substance: HALOPERIDOL
     Indication: SEDATIVE THERAPY
     Dosage: UNK
     Route: 065

REACTIONS (8)
  - Aspiration [Recovering/Resolving]
  - Choking [Recovering/Resolving]
  - Diet refusal [Recovering/Resolving]
  - Insomnia [Recovering/Resolving]
  - Mental disorder [Recovering/Resolving]
  - Confusional state [Recovering/Resolving]
  - Cardiac arrest [Recovering/Resolving]
  - Depression [Recovering/Resolving]

NARRATIVE: CASE EVENT DATE: 20140909
